FAERS Safety Report 14323316 (Version 4)
Quarter: 2022Q4

REPORT INFORMATION
  Report Type: Spontaneous
  Country: US (occurrence: US)
  Receive Date: 20171226
  Receipt Date: 20221209
  Transmission Date: 20230112
  Serious: No
  Sender: FDA-Public Use
  Company Number: US-TEVA-2017-US-836421

PATIENT

DRUGS (2)
  1. FENTANYL [Suspect]
     Active Substance: FENTANYL
     Indication: Product used for unknown indication
  2. OXYCODONE [Suspect]
     Active Substance: OXYCODONE
     Indication: Product used for unknown indication
     Dosage: EXTENDED RELEASE
     Route: 065

REACTIONS (6)
  - Pain [Unknown]
  - Muscle spasms [Unknown]
  - Bladder spasm [Unknown]
  - Pruritus [Unknown]
  - Personality change [Unknown]
  - Drug ineffective [Unknown]
